FAERS Safety Report 9129303 (Version 3)
Quarter: 2013Q1

REPORT INFORMATION
  Report Type: Report from Study
  Country: US (occurrence: US)
  Receive Date: 20130125
  Receipt Date: 20130328
  Transmission Date: 20140127
  Serious: Yes (Hospitalization)
  Sender: FDA-Public Use
  Company Number: US-JNJFOC-20130111449

PATIENT
  Sex: Male
  Weight: 58.97 kg

DRUGS (3)
  1. REMICADE [Suspect]
     Indication: CROHN^S DISEASE
     Dosage: CONFLICTINGLY REPORTED AS EVERY 8-10 WEEKS
     Route: 042
     Dates: start: 2008, end: 201110
  2. PROBIOTICS [Concomitant]
     Route: 065
  3. MULTIVITAMINS [Concomitant]
     Route: 065

REACTIONS (8)
  - Herpes zoster [Recovered/Resolved]
  - Clostridium difficile infection [Recovered/Resolved]
  - Eczema [Unknown]
  - Dehydration [Unknown]
  - Drug ineffective [Not Recovered/Not Resolved]
  - Gastrointestinal disorder [Unknown]
  - Acne [Unknown]
  - Wisdom teeth removal [Unknown]
